FAERS Safety Report 5263838-7 (Version None)
Quarter: 2007Q1

REPORT INFORMATION
  Report Type: 
  Country: None (occurrence: None)
  Receive Date: 20070313
  Receipt Date: 20070308
  Transmission Date: 20070707
  Serious: Yes (Hospitalization)
  Sender: FDA-Public Use
  Company Number: FR-GLAXOSMITHKLINE-B0461368A

PATIENT
  Age: 61 Year
  Sex: Female

DRUGS (4)
  1. AUGMENTIN [Suspect]
     Dosage: 2G PER DAY
     Route: 048
     Dates: start: 20061221, end: 20061224
  2. CORTANCYL [Concomitant]
  3. MABTHERA [Concomitant]
     Route: 050
  4. CELEBREX [Concomitant]

REACTIONS (8)
  - ABDOMINAL DISTENSION [None]
  - ABDOMINAL PAIN [None]
  - BLOOD BICARBONATE ABNORMAL [None]
  - CHOLESTASIS [None]
  - DEHYDRATION [None]
  - FEBRILE INFECTION [None]
  - GASTROINTESTINAL DISORDER [None]
  - PSEUDOMEMBRANOUS COLITIS [None]
